FAERS Safety Report 26007667 (Version 3)
Quarter: 2025Q4

REPORT INFORMATION
  Report Type: Report from Study
  Country: US (occurrence: US)
  Receive Date: 20251106
  Receipt Date: 20251123
  Transmission Date: 20260117
  Serious: Yes (Other)
  Sender: SANOFI AVENTIS
  Company Number: US-SA-2025SA327820

PATIENT
  Age: 20 Year
  Sex: Female
  Weight: 60 kg

DRUGS (1)
  1. DUPILUMAB [Suspect]
     Active Substance: DUPILUMAB
     Indication: Eosinophilic oesophagitis
     Dosage: 300 MG, QW
     Route: 058
     Dates: end: 20251104

REACTIONS (6)
  - Injection site irritation [Unknown]
  - Injection site swelling [Unknown]
  - Injection site erythema [Unknown]
  - Visual impairment [Unknown]
  - Dry eye [Unknown]
  - Eye pruritus [Unknown]
